FAERS Safety Report 10207817 (Version 1)
Quarter: 2014Q2

REPORT INFORMATION
  Report Type: Spontaneous
  Country: US (occurrence: US)
  Receive Date: 20140530
  Receipt Date: 20140530
  Transmission Date: 20141212
  Serious: No
  Sender: FDA-Public Use
  Company Number: US-GLAXOSMITHKLINE-A1060663A

PATIENT
  Age: 53 Year
  Sex: Female

DRUGS (13)
  1. VENTOLIN [Suspect]
     Indication: CHRONIC OBSTRUCTIVE PULMONARY DISEASE
     Route: 055
     Dates: start: 1978
  2. NEBULIZER TREATMENT [Concomitant]
  3. LOSARTAN [Concomitant]
  4. ISOSORBIDE [Concomitant]
  5. ASPIRIN [Concomitant]
  6. PLAVIX [Concomitant]
  7. METOPROLOL [Concomitant]
  8. CALCIUM CARBONATE [Concomitant]
  9. KLONOPIN [Concomitant]
  10. AMBIEN [Concomitant]
  11. NITROGLYCERIN [Concomitant]
  12. PERCOCET [Concomitant]
  13. UNSPECIFIED MEDICATIONS [Concomitant]

REACTIONS (2)
  - Dyspnoea [Recovered/Resolved]
  - Panic reaction [Unknown]
